FAERS Safety Report 23371131 (Version 1)
Quarter: 2024Q1

REPORT INFORMATION
  Report Type: Spontaneous
  Country: CN (occurrence: CN)
  Receive Date: 20240105
  Receipt Date: 20240105
  Transmission Date: 20240410
  Serious: Yes (Other)
  Sender: FDA-Public Use
  Company Number: CN-CHIESI-2023CHF06999

PATIENT
  Age: 51 Year
  Sex: Male

DRUGS (9)
  1. RETAVASE [Suspect]
     Active Substance: RETEPLASE
     Indication: Coronary artery occlusion
     Dosage: 30 MINUTES INTERVAL, 10 WU, A TOTAL OF 2 TIMES
     Route: 042
  2. RETAVASE [Suspect]
     Active Substance: RETEPLASE
  3. RETAVASE [Suspect]
     Active Substance: RETEPLASE
  4. DEVICE [Suspect]
     Active Substance: DEVICE
     Indication: Coronary artery occlusion
     Dosage: UNK
     Route: 065
  5. STERILE WATER [Suspect]
     Active Substance: WATER
     Indication: Coronary artery occlusion
     Dosage: UNK
     Route: 065
  6. DEVICE [Suspect]
     Active Substance: DEVICE
     Indication: Coronary artery occlusion
     Dosage: UNK
     Route: 065
  7. NADROPARIN [Suspect]
     Active Substance: NADROPARIN
     Indication: Anticoagulant therapy
     Dosage: 3000U
     Route: 058
  8. ASPIRIN [Suspect]
     Active Substance: ASPIRIN
     Indication: Antiplatelet therapy
     Dosage: 300 MG
     Route: 065
  9. CLOPIDOGREL [Suspect]
     Active Substance: CLOPIDOGREL BISULFATE
     Indication: Antiplatelet therapy
     Dosage: 300 MG
     Route: 065

REACTIONS (1)
  - Drug ineffective [Unknown]
